FAERS Safety Report 7338995-9 (Version None)
Quarter: 2011Q1

REPORT INFORMATION
  Report Type: 
  Country: None (occurrence: None)
  Receive Date: 20110308
  Receipt Date: 20110303
  Transmission Date: 20110831
  Serious: Yes (Death, Hospitalization)
  Sender: FDA-Public Use
  Company Number: DE-B.I. PHARMACEUTICALS,INC./RIDGEFIELD-2011-DE-00871DE

PATIENT
  Sex: Male
  Weight: 80 kg

DRUGS (17)
  1. BRONCHORETARD [Concomitant]
     Indication: CHRONIC OBSTRUCTIVE PULMONARY DISEASE
     Dosage: 400 MG
     Route: 048
     Dates: start: 20050101
  2. TOREM [Concomitant]
     Indication: ATRIAL FLUTTER
     Dosage: 20 MG
     Route: 048
     Dates: start: 20101201
  3. SPIRIVA [Concomitant]
     Indication: CHRONIC OBSTRUCTIVE PULMONARY DISEASE
     Dosage: 18 MCG
     Route: 055
     Dates: start: 20101201
  4. BLIND (FLUTICASONE) [Suspect]
     Indication: CHRONIC OBSTRUCTIVE PULMONARY DISEASE
     Dosage: RT: UNK
     Route: 055
     Dates: start: 20100709, end: 20101207
  5. SALBUTAMOL [Suspect]
     Indication: CHRONIC OBSTRUCTIVE PULMONARY DISEASE
     Dosage: RT:PRN
     Route: 055
     Dates: start: 20100602, end: 20101207
  6. ALNA [Concomitant]
     Indication: URINARY RETENTION
     Dosage: 0.4 MG
     Route: 048
     Dates: start: 20101201
  7. VIANI [Concomitant]
     Indication: CHRONIC OBSTRUCTIVE PULMONARY DISEASE
     Dosage: STR.: 50/150MCG, D. DOSE: 100/300 MCG
     Route: 055
     Dates: start: 20101201
  8. TIOTROPIUM BROMIDE [Suspect]
     Indication: CHRONIC OBSTRUCTIVE PULMONARY DISEASE
     Dosage: 18 MCG
     Route: 055
     Dates: start: 20100602, end: 20101207
  9. SALMETEROL [Suspect]
     Indication: CHRONIC OBSTRUCTIVE PULMONARY DISEASE
     Dosage: 100 MCG
     Route: 055
     Dates: start: 20100602, end: 20101207
  10. ATOSIL [Concomitant]
     Indication: ATRIAL FLUTTER
     Dosage: 300 MG
     Route: 048
     Dates: start: 20101201
  11. TIOTROPIUM BROMIDE [Suspect]
     Dosage: 18 MCG
     Route: 055
     Dates: start: 20100602, end: 20101207
  12. ASPIRIN [Concomitant]
     Indication: COR PULMONALE
     Dosage: 100 MG
     Route: 048
     Dates: start: 20101201
  13. BEROTEC [Concomitant]
     Indication: CHRONIC OBSTRUCTIVE PULMONARY DISEASE
     Dosage: PRN
     Route: 055
     Dates: start: 20101201
  14. DELIX [Concomitant]
     Indication: COR PULMONALE
     Dosage: 1.25 MG
     Route: 048
     Dates: start: 20101201
  15. SIMVA [Concomitant]
     Indication: PROPHYLAXIS
     Dosage: 20 MG
     Route: 048
     Dates: start: 20101201
  16. METOPROLOL SUCCINATE [Concomitant]
     Indication: ATRIAL FLUTTER
     Dosage: 47.5 MG
     Route: 048
     Dates: start: 20101201
  17. CLEXANE [Concomitant]
     Indication: ATRIAL FLUTTER
     Dosage: 1 MG
     Route: 058
     Dates: start: 20101201

REACTIONS (4)
  - ATRIAL FLUTTER [None]
  - COR PULMONALE [None]
  - URINARY RETENTION [None]
  - SUDDEN DEATH [None]
